FAERS Safety Report 5398773-7 (Version None)
Quarter: 2007Q3

REPORT INFORMATION
  Report Type: 
  Country: None (occurrence: None)
  Receive Date: 20070724
  Receipt Date: 20070717
  Transmission Date: 20080115
  Serious: Yes (Hospitalization)
  Sender: FDA-Public Use
  Company Number: 2007BI011542

PATIENT
  Age: 49 Year
  Sex: Male

DRUGS (7)
  1. AVONEX [Suspect]
     Indication: MULTIPLE SCLEROSIS
     Dosage: 30 UG; QW; IM
     Route: 030
     Dates: start: 20060526
  2. CARBAMAZEPINE [Concomitant]
  3. TOPIRAMATE [Concomitant]
  4. IBUPROFEN [Concomitant]
  5. ACETAMINOPHEN [Concomitant]
  6. TYLENOL #3 [Concomitant]
  7. PRIMROSE OIL [Concomitant]

REACTIONS (1)
  - MIGRAINE [None]
